FAERS Safety Report 25208518 (Version 2)
Quarter: 2025Q3

REPORT INFORMATION
  Report Type: Spontaneous
  Country: US (occurrence: US)
  Receive Date: 20250417
  Receipt Date: 20250714
  Transmission Date: 20251020
  Serious: Yes (Other)
  Sender: BRISTOL-MYERS SQUIBB COMPANY
  Company Number: US-BRISTOL-MYERS SQUIBB COMPANY-2025-054873

PATIENT
  Age: 54 Year
  Sex: Male

DRUGS (2)
  1. NELVUTAMIG [Suspect]
     Active Substance: NELVUTAMIG
     Indication: Nodular melanoma
  2. TEMODAR [Concomitant]
     Active Substance: TEMOZOLOMIDE
     Indication: Nodular melanoma
     Dosage: DAYS 1-4 EVERY 3 WEEKS FOR 4 CYCLES.

REACTIONS (1)
  - Orbital myositis [Unknown]
